FAERS Safety Report 4527508-2 (Version None)
Quarter: 2004Q4

REPORT INFORMATION
  Report Type: 
  Country: None (occurrence: None)
  Receive Date: 20041130
  Receipt Date: 20040921
  Transmission Date: 20050328
  Serious: No
  Sender: FDA-Public Use
  Company Number: WAES 0409USA01745

PATIENT
  Age: 63 Year
  Sex: Male
  Weight: 83.9154 kg

DRUGS (5)
  1. ZETIA [Suspect]
     Dosage: 10 MG/ DAILY/ PO
     Route: 048
     Dates: start: 20040608, end: 20040621
  2. ZETIA [Suspect]
     Dosage: DAILY / PO
     Route: 048
     Dates: start: 20040622, end: 20040901
  3. HYDRODIURIL [Concomitant]
  4. PRINIVIL [Concomitant]
  5. TOPROL-XL [Concomitant]

REACTIONS (7)
  - APATHY [None]
  - ASTHENIA [None]
  - FATIGUE [None]
  - FLATULENCE [None]
  - FREQUENT BOWEL MOVEMENTS [None]
  - LOOSE STOOLS [None]
  - MEDICATION ERROR [None]
